FAERS Safety Report 5318084-5 (Version None)
Quarter: 2007Q1

REPORT INFORMATION
  Report Type: 
  Country: None (occurrence: None)
  Receive Date: 20070207
  Receipt Date: 20061114
  Transmission Date: 20070707
  Serious: No
  Sender: FDA-Public Use
  Company Number: PPD2-2006-00003

PATIENT
  Age: 68 Year
  Sex: Male
  Weight: 93.2 kg

DRUGS (1)
  1. FOSRENOL [Suspect]
     Indication: HYPERPHOSPHATAEMIA
     Dosage: 3000 MG, 1X/DAY:QD, ORAL
     Route: 048
     Dates: start: 20061009

REACTIONS (1)
  - SHUNT THROMBOSIS [None]
